FAERS Safety Report 9604814 (Version 1)
Quarter: 2013Q4

REPORT INFORMATION
  Report Type: Spontaneous
  Country: US (occurrence: US)
  Receive Date: 20131008
  Receipt Date: 20131008
  Transmission Date: 20140711
  Serious: No
  Sender: FDA-Public Use
  Company Number: US-BAXTER-2013BAX011324

PATIENT
  Sex: Female

DRUGS (2)
  1. DIANEAL LOW CALCIUM [Suspect]
     Indication: PERITONEAL DIALYSIS
     Route: 033
     Dates: end: 20130325
  2. DIANEAL LOW CALCIUM [Suspect]
     Route: 033
     Dates: start: 20130325

REACTIONS (8)
  - Procedural complication [Recovering/Resolving]
  - Dysarthria [Recovering/Resolving]
  - Hypopnoea [Recovering/Resolving]
  - Breast pain [Recovering/Resolving]
  - Abdominal distension [Recovering/Resolving]
  - Dyspnoea [Recovering/Resolving]
  - Diarrhoea [Recovering/Resolving]
  - Abdominal pain [Recovering/Resolving]
